FAERS Safety Report 15265464 (Version 1)
Quarter: 2018Q3

REPORT INFORMATION
  Report Type: Spontaneous
  Country: CN (occurrence: CN)
  Receive Date: 20180810
  Receipt Date: 20180810
  Transmission Date: 20181010
  Serious: Yes (Other)
  Sender: FDA-Public Use
  Company Number: CN-PFIZER INC-2018303394

PATIENT
  Age: 38 Year
  Sex: Female

DRUGS (4)
  1. CEFTRIAXONE SODIUM. [Suspect]
     Active Substance: CEFTRIAXONE SODIUM
     Indication: CHOLECYSTITIS CHRONIC
  2. SODIUM CHLORIDE. [Suspect]
     Active Substance: SODIUM CHLORIDE
     Indication: CHOLECYSTITIS CHRONIC
  3. SODIUM CHLORIDE. [Suspect]
     Active Substance: SODIUM CHLORIDE
     Indication: CHOLELITHIASIS
     Dosage: 250 ML, UNK, (INFUSION OF CEFTRIAXONE SODIUM 2.0 G DISSOLVED IN 250ML OF SODIUM CHLORIDE INJECTION )
     Route: 042
  4. CEFTRIAXONE SODIUM. [Suspect]
     Active Substance: CEFTRIAXONE SODIUM
     Indication: CHOLELITHIASIS
     Dosage: 2 G, UNK, (IV SODIUM 2.0 G DISSOLVED IN 250ML OF SODIUM CHLORIDE INJECTION )
     Route: 042

REACTIONS (2)
  - Tetany [Recovered/Resolved]
  - Dysphoria [Recovered/Resolved]
